FAERS Safety Report 20712945 (Version 1)
Quarter: 2022Q2

REPORT INFORMATION
  Report Type: Spontaneous
  Country: FR (occurrence: FR)
  Receive Date: 20220415
  Receipt Date: 20220415
  Transmission Date: 20220721
  Serious: Yes (Other)
  Sender: FDA-Public Use
  Company Number: None

PATIENT
  Age: 58 Year
  Sex: Female
  Weight: 87 kg

DRUGS (1)
  1. TAMOXIFEN CITRATE [Suspect]
     Active Substance: TAMOXIFEN CITRATE
     Indication: Breast cancer
     Dosage: UNIT DOSE : 20 MG, FREQUENCY TIME :1 DAY
     Route: 048
     Dates: start: 201102, end: 2017

REACTIONS (2)
  - Optic neuropathy [Recovered/Resolved with Sequelae]
  - Cataract nuclear [Recovered/Resolved with Sequelae]

NARRATIVE: CASE EVENT DATE: 20170201
